FAERS Safety Report 4324572-0 (Version None)
Quarter: 2004Q1

REPORT INFORMATION
  Report Type: 
  Country: None (occurrence: None)
  Receive Date: 20040323
  Receipt Date: 20040308
  Transmission Date: 20041129
  Serious: Yes (Death)
  Sender: FDA-Public Use
  Company Number: 2004-DE-01154GD

PATIENT
  Age: 32 Year
  Sex: Male

DRUGS (3)
  1. PREDNISONE [Suspect]
     Indication: CROHN'S DISEASE
     Dosage: 50 MCG
  2. METHOTREXATE [Suspect]
     Indication: CROHN'S DISEASE
     Dosage: 25 MG
  3. INFLIXIMAB (INFLIXIMAB) [Suspect]
     Indication: CROHN'S DISEASE
     Dosage: IV
     Route: 042

REACTIONS (1)
  - DEATH [None]
